FAERS Safety Report 8091790 (Version 3)
Quarter: 2013Q4

REPORT INFORMATION
  Report Type: Spontaneous
  Country: US (occurrence: US)
  Receive Date: 20110816
  Receipt Date: 20131129
  Transmission Date: 20140711
  Serious: No
  Sender: FDA-Public Use
  Company Number: US-JNJFOC-20110804356

PATIENT
  Sex: Female
  Weight: 62.6 kg

DRUGS (6)
  1. DURAGESIC [Suspect]
     Indication: PAIN
     Route: 062
     Dates: start: 201107
  2. DURAGESIC [Suspect]
     Indication: PAIN
     Route: 062
     Dates: start: 201011, end: 201107
  3. LOPRESSOR [Concomitant]
     Indication: BLOOD PRESSURE
     Route: 048
  4. ZANTAC [Concomitant]
     Indication: ULCER
     Route: 048
  5. NEURONTIN [Concomitant]
     Indication: PAIN
     Route: 048
  6. SKELAXIN [Concomitant]
     Indication: PAIN
     Route: 048

REACTIONS (3)
  - Drug administered at inappropriate site [Not Recovered/Not Resolved]
  - Drug ineffective [Not Recovered/Not Resolved]
  - Product adhesion issue [Unknown]
